FAERS Safety Report 7037953-1 (Version None)
Quarter: 2010Q4

REPORT INFORMATION
  Report Type: 
  Country: None (occurrence: None)
  Receive Date: 20101011
  Receipt Date: 20101005
  Transmission Date: 20110411
  Serious: Yes (Other)
  Sender: FDA-Public Use
  Company Number: ES-AMGEN-QUU442083

PATIENT
  Sex: Female

DRUGS (2)
  1. NEUPOGEN [Suspect]
     Indication: PRODUCT USED FOR UNKNOWN INDICATION
  2. UNSPECIFIED ANTINEOPLASTIC AGENT [Concomitant]

REACTIONS (9)
  - AGEUSIA [None]
  - BONE PAIN [None]
  - ECZEMA [None]
  - LOCAL SWELLING [None]
  - ORAL FUNGAL INFECTION [None]
  - OROPHARYNGEAL PAIN [None]
  - SECONDARY IMMUNODEFICIENCY [None]
  - SWELLING FACE [None]
  - SWOLLEN TONGUE [None]
